FAERS Safety Report 9848971 (Version 6)
Quarter: 2015Q2

REPORT INFORMATION
  Report Type: Spontaneous
  Country: US (occurrence: US)
  Receive Date: 20140128
  Receipt Date: 20150616
  Transmission Date: 20150821
  Serious: Yes (Other)
  Sender: FDA-Public Use
  Company Number: US-ASTELLAS-2014US000659

PATIENT
  Age: 81 Year
  Sex: Male

DRUGS (2)
  1. XTANDI [Suspect]
     Active Substance: ENZALUTAMIDE
     Indication: PROSTATE CANCER
     Route: 048
     Dates: start: 20131211
  2. XTANDI [Suspect]
     Active Substance: ENZALUTAMIDE
     Indication: METASTASIS

REACTIONS (6)
  - Tremor [Unknown]
  - Fatigue [Not Recovered/Not Resolved]
  - Hypophagia [Unknown]
  - Insomnia [Unknown]
  - Back pain [Unknown]
  - Blood glucose decreased [Unknown]

NARRATIVE: CASE EVENT DATE: 20140106
